FAERS Safety Report 6128997-2 (Version None)
Quarter: 2009Q1

REPORT INFORMATION
  Report Type: 
  Country: None (occurrence: None)
  Receive Date: 20090324
  Receipt Date: 20090313
  Transmission Date: 20090719
  Serious: Yes (Other)
  Sender: FDA-Public Use
  Company Number: PHHY2009FR03036

PATIENT
  Sex: Female
  Weight: 44 kg

DRUGS (5)
  1. ACLASTA [Suspect]
     Indication: OSTEOPOROSIS
     Dosage: 5 MG
  2. EXELON [Concomitant]
     Dosage: 3 MG, BID
     Dates: start: 20060101
  3. EQUANIL [Concomitant]
     Dosage: 400 MG/DAY
     Dates: start: 20060101
  4. LAROXYL [Concomitant]
     Dosage: 10 DROPS/DAY
     Dates: start: 20060101
  5. NOZINAN [Concomitant]
     Dosage: 5 DROPS PER DAY

REACTIONS (2)
  - OEDEMA PERIPHERAL [None]
  - PHLEBITIS [None]
